FAERS Safety Report 9687871 (Version 1)
Quarter: 2013Q4

REPORT INFORMATION
  Report Type: Spontaneous
  Country: JP (occurrence: JP)
  Receive Date: 20131114
  Receipt Date: 20131114
  Transmission Date: 20140711
  Serious: Yes (Other)
  Sender: FDA-Public Use
  Company Number: JP-ROCHE-1299433

PATIENT
  Sex: Male

DRUGS (5)
  1. AVASTIN [Suspect]
     Indication: PRODUCT USED FOR UNKNOWN INDICATION
     Route: 041
  2. IRINOTECAN HYDROCHLORIDE [Concomitant]
     Indication: COLON CANCER
     Route: 041
  3. 5-FU [Concomitant]
     Indication: COLON CANCER
     Route: 040
  4. 5-FU [Concomitant]
     Indication: COLON CANCER
     Route: 041
  5. CALCIUM LEVOFOLINATE [Concomitant]
     Indication: COLON CANCER
     Route: 041

REACTIONS (2)
  - Altered state of consciousness [Unknown]
  - Convulsion [Unknown]
